FAERS Safety Report 11915435 (Version 1)
Quarter: 2016Q1

REPORT INFORMATION
  Report Type: Spontaneous
  Country: US (occurrence: None)
  Receive Date: 20160113
  Receipt Date: 20160113
  Transmission Date: 20160526
  Serious: Yes (Death)
  Sender: FDA-Public Use
  Company Number: None

PATIENT
  Age: 86 Year
  Sex: Female
  Weight: 69 kg

DRUGS (1)
  1. WARFARIN 2MG [Suspect]
     Active Substance: WARFARIN
     Indication: ANTICOAGULANT THERAPY
     Route: 048

REACTIONS (2)
  - Haemorrhage intracranial [None]
  - Unresponsive to stimuli [None]

NARRATIVE: CASE EVENT DATE: 20151220
